FAERS Safety Report 9353713 (Version 2)
Quarter: 2014Q1

REPORT INFORMATION
  Report Type: Spontaneous
  Country: DK (occurrence: FR)
  Receive Date: 20130618
  Receipt Date: 20140328
  Transmission Date: 20141002
  Serious: Yes (Disabling)
  Sender: FDA-Public Use
  Company Number: FR-FRI-1000045959

PATIENT
  Age: 87 Year
  Sex: Male

DRUGS (13)
  1. ESCITALOPRAM [Suspect]
     Route: 048
     Dates: start: 201202, end: 20130503
  2. KEAL [Suspect]
     Route: 048
     Dates: start: 201212, end: 20130503
  3. INEXIUM [Suspect]
     Route: 048
     Dates: start: 2008, end: 20130507
  4. SERETIDE DISKUS [Concomitant]
  5. SPIRIVA [Concomitant]
  6. PROCORALAN [Concomitant]
  7. AMLOR [Concomitant]
  8. GAVISCON [Concomitant]
  9. TAHOR [Concomitant]
  10. KARDEGIC [Concomitant]
  11. TARDYFERON [Concomitant]
  12. MOTILIUM [Concomitant]
  13. KALEORID [Concomitant]

REACTIONS (1)
  - Metabolic encephalopathy [Not Recovered/Not Resolved]
